FAERS Safety Report 5906254-4 (Version None)
Quarter: 2008Q4

REPORT INFORMATION
  Report Type: 
  Country: None (occurrence: None)
  Receive Date: 20081002
  Receipt Date: 20080929
  Transmission Date: 20090506
  Serious: Yes (Hospitalization)
  Sender: FDA-Public Use
  Company Number: JP-BAYER-200812024BYL

PATIENT
  Age: 61 Year
  Sex: Male
  Weight: 48 kg

DRUGS (9)
  1. NEXAVAR [Suspect]
     Indication: RENAL CELL CARCINOMA STAGE IV
     Dosage: AS USED: 800 MG  UNIT DOSE: 200 MG
     Route: 048
     Dates: start: 20080722, end: 20080730
  2. NEXAVAR [Suspect]
     Dosage: AS USED: 400 MG  UNIT DOSE: 200 MG
     Route: 048
     Dates: start: 20080731
  3. ZOMETA [Suspect]
     Indication: HYPERCALCAEMIA
     Route: 041
  4. NORVASC [Concomitant]
     Indication: HYPERTENSION
     Dosage: TOTAL DAILY DOSE: 2.5 MG  UNIT DOSE: 2.5 MG
     Route: 048
     Dates: start: 20080722, end: 20080808
  5. ZYLORIC [Concomitant]
     Indication: HYPERURICAEMIA
     Dosage: TOTAL DAILY DOSE: 100 MG  UNIT DOSE: 100 MG
     Route: 048
     Dates: start: 20080722
  6. FERROMIA [Concomitant]
     Indication: IRON DEFICIENCY ANAEMIA
     Dosage: AS USED: 2 DF  UNIT DOSE: 1 DF
     Route: 048
     Dates: start: 20080722
  7. NAIXAN [Concomitant]
     Dosage: AS USED: 2 DF  UNIT DOSE: 1 DF
     Route: 048
     Dates: start: 20080722
  8. URSO 250 [Concomitant]
     Dosage: AS USED: 3 DF  UNIT DOSE: 1 DF
     Route: 048
     Dates: start: 20080722
  9. NORVASC [Concomitant]
     Dosage: AS USED: 5 MG
     Route: 048
     Dates: start: 20080809

REACTIONS (8)
  - ASCITES [None]
  - BLOOD AMYLASE INCREASED [None]
  - HYPERTENSION [None]
  - HYPOPHOSPHATAEMIA [None]
  - PANCYTOPENIA [None]
  - PLATELET COUNT DECREASED [None]
  - PYREXIA [None]
  - RASH [None]
